FAERS Safety Report 19305603 (Version 1)
Quarter: 2021Q2

REPORT INFORMATION
  Report Type: Report from Study
  Country: None (occurrence: US)
  Receive Date: 20210526
  Receipt Date: 20210526
  Transmission Date: 20210717
  Serious: Yes (Other)
  Sender: FDA-Public Use
  Company Number: BR-ABBVIE-21P-020-3920908-00

PATIENT
  Sex: Female
  Weight: 68 kg

DRUGS (5)
  1. GARDENAL [Concomitant]
     Active Substance: PHENOBARBITAL
     Indication: SEIZURE
     Dosage: ONCE AT NIGHT
     Route: 048
  2. FRISIUM [Concomitant]
     Active Substance: CLOBAZAM
     Indication: HAEMATOMA
     Dosage: DD: 1 TABLET; AT NIGHT
     Route: 048
  3. DEPAKENE [Suspect]
     Active Substance: VALPROIC ACID
     Indication: SEIZURE
     Route: 048
  4. ETIRA [Concomitant]
     Indication: SEIZURE
     Route: 048
     Dates: start: 202007
  5. TRILEPTAL [Concomitant]
     Active Substance: OXCARBAZEPINE
     Indication: SEIZURE
     Dosage: IN THE MORNING, AT NIGHT
     Route: 048

REACTIONS (2)
  - Cerebrovascular accident [Unknown]
  - Femur fracture [Unknown]
